FAERS Safety Report 9457202 (Version 2)
Quarter: 2013Q3

REPORT INFORMATION
  Report Type: Spontaneous
  Country: HK (occurrence: HK)
  Receive Date: 20130814
  Receipt Date: 20130815
  Transmission Date: 20140515
  Serious: Yes (Other)
  Sender: FDA-Public Use
  Company Number: HK-009507513-1306HKG013906

PATIENT
  Sex: Female

DRUGS (1)
  1. COPPERTONE SPORT SPF 50 [Suspect]
     Dosage: CONCENTRATION SPF50
     Route: 003

REACTIONS (1)
  - Hypersensitivity [Unknown]
